FAERS Safety Report 8811515 (Version 1)
Quarter: 2012Q4

REPORT INFORMATION
  Report Type: Spontaneous
  Country: US (occurrence: None)
  Receive Date: 20120925
  Receipt Date: 20120925
  Transmission Date: 20130627
  Serious: No
  Sender: FDA-Public Use
  Company Number: None

PATIENT
  Age: 83 Year
  Sex: Male
  Weight: 80.7 kg

DRUGS (1)
  1. THIAMINE [Suspect]
     Indication: ALCOHOL WITHDRAWAL SYNDROME
     Route: 042
     Dates: start: 20120820, end: 20120821

REACTIONS (3)
  - Rash [None]
  - Urticaria [None]
  - Pruritus [None]
